FAERS Safety Report 9184572 (Version 1)
Quarter: 2012Q4

REPORT INFORMATION
  Report Type: 
  Country: US (occurrence: US)
  Receive Date: 20121101
  Receipt Date: 20121101
  Transmission Date: 20130627
  Serious: Yes (Other)
  Sender: FDA-Public Use
  Company Number: US-PFIZER INC-2012272383

PATIENT
  Sex: Male

DRUGS (2)
  1. LYRICA [Suspect]
     Dosage: 75 mg, single
     Route: 048
  2. CANNABIS SATIVA SUBSP. INDICA TOP [Suspect]
     Dosage: UNK

REACTIONS (1)
  - Loss of consciousness [Unknown]
